FAERS Safety Report 8716822 (Version 2)
Quarter: 2013Q4

REPORT INFORMATION
  Report Type: Spontaneous
  Country: FR (occurrence: FR)
  Receive Date: 20120810
  Receipt Date: 20131031
  Transmission Date: 20140711
  Serious: Yes (Hospitalization)
  Sender: FDA-Public Use
  Company Number: FR-009507513-1208FRA001947

PATIENT
  Age: 81 Year
  Sex: Male

DRUGS (8)
  1. INEGY [Suspect]
     Indication: DYSLIPIDAEMIA
     Dosage: UNK
     Route: 048
     Dates: end: 20120703
  2. PRADAXA [Suspect]
     Indication: ATRIAL FIBRILLATION
     Dosage: UNK
     Route: 048
     Dates: start: 20120423, end: 20120703
  3. MONICOR [Suspect]
     Dosage: UNK
     Dates: end: 20120703
  4. DIGOXIN [Concomitant]
     Route: 048
  5. METFORMIN [Concomitant]
     Route: 048
  6. SPIRONOLACTONE [Concomitant]
     Route: 048
  7. FUROSEMIDE [Concomitant]
     Route: 048
  8. ALLOPURINOL [Concomitant]

REACTIONS (1)
  - Subarachnoid haemorrhage [Recovering/Resolving]
